FAERS Safety Report 24286799 (Version 1)
Quarter: 2024Q3

REPORT INFORMATION
  Report Type: Spontaneous
  Country: US (occurrence: None)
  Receive Date: 20240903
  Receipt Date: 20240903
  Transmission Date: 20241016
  Serious: Yes (Death)
  Sender: Public
  Company Number: None

PATIENT
  Age: 71 Year
  Sex: Female

DRUGS (12)
  1. LOKELMA [Suspect]
     Active Substance: SODIUM ZIRCONIUM CYCLOSILICATE
     Indication: Hyperkalaemia
     Dosage: 10 GRAMS(S) - GM DRINK 4 X/WK (TU-TH-SA-SU) ORAL?
     Route: 048
     Dates: start: 20230905
  2. LOSARTAN POTASSIUM [Concomitant]
     Active Substance: LOSARTAN POTASSIUM
  3. CALCIUM [Concomitant]
     Active Substance: CALCIUM
  4. COREG [Concomitant]
     Active Substance: CARVEDILOL
  5. ELIQUIS [Concomitant]
     Active Substance: APIXABAN
  6. FIBER THERAPY (CALCIUM POLYCARBOPHIL) [Concomitant]
     Active Substance: CALCIUM POLYCARBOPHIL
  7. HUMALOG [Concomitant]
     Active Substance: INSULIN LISPRO
  8. LANTUS SOLOSTAR [Concomitant]
     Active Substance: INSULIN GLARGINE
  9. MULTIVITAMIN ADULTS TABLETS [Concomitant]
  10. PHOSLO [Concomitant]
     Active Substance: CALCIUM ACETATE
  11. SEVELAMER [Concomitant]
     Active Substance: SEVELAMER
  12. VITAMIN D [Concomitant]
     Active Substance: VITAMIN D NOS

REACTIONS (1)
  - Death [None]
